FAERS Safety Report 4452561-4 (Version None)
Quarter: 2004Q3

REPORT INFORMATION
  Report Type: 
  Country: None (occurrence: None)
  Receive Date: 20040813
  Receipt Date: 20040520
  Transmission Date: 20050211
  Serious: No
  Sender: FDA-Public Use
  Company Number: S04-USA-03429-01

PATIENT
  Age: 82 Year
  Sex: Male

DRUGS (7)
  1. NAMENDA [Suspect]
     Indication: DEMENTIA
     Dosage: 5 MG QD PO
     Route: 048
     Dates: start: 20040301, end: 20040101
  2. HYDROCHLOROTHIAZIDE [Concomitant]
  3. DETROL [Concomitant]
  4. PLAVIX [Concomitant]
  5. CAPTOPRIL [Concomitant]
  6. ACETAMINOPHEN W/ CODEINE [Concomitant]
  7. MULTIVITAMIN [Concomitant]

REACTIONS (6)
  - BLOOD PRESSURE INCREASED [None]
  - CONFUSIONAL STATE [None]
  - CONSTIPATION [None]
  - DIZZINESS [None]
  - HEADACHE [None]
  - NAUSEA [None]
